FAERS Safety Report 4617274-4 (Version None)
Quarter: 2005Q1

REPORT INFORMATION
  Report Type: 
  Country: None (occurrence: None)
  Receive Date: 20050323
  Receipt Date: 20020516
  Transmission Date: 20050727
  Serious: Yes (Hospitalization, Other)
  Sender: FDA-Public Use
  Company Number: US-MERCK-0205USA01978

PATIENT
  Age: 54 Year
  Sex: Female
  Weight: 54 kg

DRUGS (4)
  1. XANAX [Concomitant]
     Route: 065
  2. [THERAPY UNSPECIFIED] [Concomitant]
     Route: 065
  3. VIOXX [Suspect]
     Indication: OSTEOARTHRITIS
     Route: 048
     Dates: start: 20010101, end: 20010101
  4. PRILOSEC [Concomitant]
     Route: 065

REACTIONS (49)
  - ANXIETY [None]
  - ASTHENIA [None]
  - BACK INJURY [None]
  - BREAST PAIN [None]
  - CARPAL TUNNEL SYNDROME [None]
  - CELLULITIS [None]
  - CERVICAL SPINAL STENOSIS [None]
  - CERVICOBRACHIAL SYNDROME [None]
  - CHEST PAIN [None]
  - CHRONIC FATIGUE SYNDROME [None]
  - COLITIS [None]
  - CONTUSION [None]
  - DECREASED ACTIVITY [None]
  - DEPRESSION [None]
  - DRUG DEPENDENCE [None]
  - EMOTIONAL DISTRESS [None]
  - EXOSTOSIS [None]
  - FALL [None]
  - FEELING ABNORMAL [None]
  - GASTRITIS [None]
  - GASTROOESOPHAGEAL REFLUX DISEASE [None]
  - HAEMORRHOIDS [None]
  - HEAD INJURY [None]
  - HELICOBACTER INFECTION [None]
  - HYPERCHOLESTEROLAEMIA [None]
  - HYPERTENSION [None]
  - HYPOAESTHESIA [None]
  - INCISION SITE COMPLICATION [None]
  - INSOMNIA [None]
  - INTERVERTEBRAL DISC PROTRUSION [None]
  - LIGAMENT SPRAIN [None]
  - LOSS OF CONSCIOUSNESS [None]
  - LUMBAR SPINAL STENOSIS [None]
  - MALAISE [None]
  - MIGRAINE [None]
  - MUSCLE SPASMS [None]
  - MYOFASCIAL PAIN SYNDROME [None]
  - NAUSEA [None]
  - OESOPHAGITIS [None]
  - OSTEOARTHRITIS [None]
  - PANIC ATTACK [None]
  - PANIC DISORDER [None]
  - PELVIC PAIN [None]
  - RADICULITIS CERVICAL [None]
  - ROAD TRAFFIC ACCIDENT [None]
  - SWELLING FACE [None]
  - THERAPEUTIC RESPONSE DECREASED [None]
  - TRIGGER FINGER [None]
  - VISUAL ACUITY REDUCED [None]
